FAERS Safety Report 20523409 (Version 2)
Quarter: 2022Q1

REPORT INFORMATION
  Report Type: Spontaneous
  Country: BR (occurrence: BR)
  Receive Date: 20220228
  Receipt Date: 20220301
  Transmission Date: 20220423
  Serious: Yes (Hospitalization, Disabling, Other)
  Sender: FDA-Public Use
  Company Number: None

PATIENT
  Age: 36 Year
  Sex: Male

DRUGS (4)
  1. CALCITRIOL [Suspect]
     Active Substance: CALCITRIOL
     Indication: Osteogenesis imperfecta
     Dosage: 70 MILLIGRAM PER WEEK
     Route: 065
  2. CHOLECALCIFEROL [Suspect]
     Active Substance: CHOLECALCIFEROL
     Indication: Osteogenesis imperfecta
     Dosage: UNK
     Route: 065
  3. CALCIUM CARBONATE [Suspect]
     Active Substance: CALCIUM CARBONATE
     Indication: Osteogenesis imperfecta
     Dosage: UNK
     Route: 065
  4. ALENDRONATE [Suspect]
     Active Substance: ALENDRONATE SODIUM
     Indication: Osteogenesis imperfecta
     Dosage: 70 MILLIGRAM PER WEEK
     Route: 065

REACTIONS (7)
  - Nephrolithiasis [Unknown]
  - Nephropathy [Recovered/Resolved]
  - Chronic kidney disease [Recovered/Resolved]
  - Hypophosphatasia [Unknown]
  - Nephrocalcinosis [Unknown]
  - Renal cyst [Unknown]
  - Off label use [Unknown]
